FAERS Safety Report 7213460-8 (Version None)
Quarter: 2011Q1

REPORT INFORMATION
  Report Type: 
  Country: None (occurrence: None)
  Receive Date: 20110106
  Receipt Date: 20101229
  Transmission Date: 20110831
  Serious: Yes (Hospitalization)
  Sender: FDA-Public Use
  Company Number: FR-JNJFOC-20101206125

PATIENT
  Age: 51 Year
  Sex: Female

DRUGS (9)
  1. TAVANIC [Suspect]
     Route: 042
  2. SKENAN [Concomitant]
     Route: 048
  3. SEGLOR [Concomitant]
     Route: 048
  4. EFFEXOR [Concomitant]
     Route: 048
  5. TAVANIC [Suspect]
     Indication: PNEUMONIA
     Route: 048
  6. LYSANXIA [Concomitant]
     Route: 048
  7. ACTISKENAN [Concomitant]
     Route: 048
  8. CLAFORAN [Suspect]
     Indication: LUNG DISORDER
     Route: 042
  9. LOVENOX [Concomitant]
     Route: 058

REACTIONS (4)
  - MONOPLEGIA [None]
  - MUSCLE DISORDER [None]
  - QUADRIPLEGIA [None]
  - RHABDOMYOLYSIS [None]
